FAERS Safety Report 6705983-2 (Version None)
Quarter: 2010Q2

REPORT INFORMATION
  Report Type: 
  Country: None (occurrence: None)
  Receive Date: 20100430
  Receipt Date: 20100430
  Transmission Date: 20101027
  Serious: Yes (Life-Threatening, Hospitalization)
  Sender: FDA-Public Use
  Company Number: None

PATIENT
  Age: 85 Year
  Sex: Male
  Weight: 53.978 kg

DRUGS (8)
  1. SEROQUEL [Suspect]
     Indication: MENTAL STATUS CHANGES
     Dosage: 1.2 TABLET TWICE DAILY PO
     Route: 048
     Dates: start: 20100208, end: 20100215
  2. LANTUS [Concomitant]
  3. CLINDAMYCIN [Concomitant]
  4. BACTRIM [Concomitant]
  5. METFORMIN HYDROCHLORIDE [Concomitant]
  6. GLIPIZIDE [Concomitant]
  7. VIBRAMYCIN [Concomitant]
  8. FLAGYL [Concomitant]

REACTIONS (7)
  - ANAEMIA [None]
  - CONFUSIONAL STATE [None]
  - DYSKINESIA [None]
  - HYPERGLYCAEMIA [None]
  - HYPERKALAEMIA [None]
  - KETOACIDOSIS [None]
  - SOMNOLENCE [None]
